FAERS Safety Report 7792709-7 (Version None)
Quarter: 2011Q4

REPORT INFORMATION
  Report Type: 
  Country: None (occurrence: None)
  Receive Date: 20111003
  Receipt Date: 20110809
  Transmission Date: 20120403
  Serious: Yes (Other)
  Sender: FDA-Public Use
  Company Number: FR-MERCK-1108USA01294

PATIENT
  Age: 82 Year

DRUGS (18)
  1. JANUVIA [Suspect]
     Indication: TYPE 2 DIABETES MELLITUS
     Route: 048
     Dates: start: 20100422, end: 20110518
  2. TRAMADOL HCL [Suspect]
     Route: 048
     Dates: start: 20100603, end: 20110403
  3. GLUCOVANCE [Suspect]
     Route: 048
     Dates: end: 20110412
  4. GLUCOPHAGE [Concomitant]
     Route: 048
     Dates: start: 20110412
  5. NEXIUM [Concomitant]
     Route: 048
     Dates: start: 20110403
  6. ZESTRIL [Concomitant]
     Route: 048
     Dates: start: 20110412
  7. LOVENOX [Concomitant]
     Route: 058
     Dates: start: 20110404
  8. ZESTORETIC [Suspect]
     Route: 048
     Dates: end: 20110411
  9. ALFUZOSIN HCL [Concomitant]
     Route: 048
     Dates: start: 20110409
  10. INDAPAMIDE [Concomitant]
     Route: 048
     Dates: start: 20110428
  11. ASPIRIN [Suspect]
     Route: 048
     Dates: end: 20110403
  12. ATARAX [Concomitant]
     Route: 048
     Dates: start: 20110413, end: 20110417
  13. AMARYL [Concomitant]
     Route: 048
     Dates: start: 20110412
  14. PANTOPRAZOLE SODIUM [Suspect]
     Route: 048
     Dates: end: 20110412
  15. LEVOTHYROXINE SODIUM [Suspect]
     Route: 048
  16. BACTRIM [Concomitant]
     Route: 048
     Dates: start: 20110409, end: 20110416
  17. MODOPAR [Suspect]
     Route: 048
  18. PROZAC [Concomitant]
     Route: 048
     Dates: start: 20110407, end: 20110412

REACTIONS (1)
  - PANCREATITIS CHRONIC [None]
